FAERS Safety Report 8368159-1 (Version None)
Quarter: 2012Q2

REPORT INFORMATION
  Report Type: 
  Country: None (occurrence: None)
  Receive Date: 20120517
  Receipt Date: 20120510
  Transmission Date: 20120825
  Serious: Yes (Other)
  Sender: FDA-Public Use
  Company Number: US-ABBOTT-12P-163-0934589-00

PATIENT
  Age: 52 Year
  Sex: Male

DRUGS (8)
  1. HUMIRA [Suspect]
     Indication: PRODUCT USED FOR UNKNOWN INDICATION
     Dates: start: 20110101
  2. GEMFIBROZIL [Concomitant]
     Indication: BLOOD TRIGLYCERIDES
  3. HYDROCODONE [Concomitant]
     Indication: PAIN
  4. ATENOLOL [Concomitant]
     Indication: HYPERTENSION
  5. SORIATANE [Concomitant]
     Indication: PSORIASIS
  6. TRAMADOL HYDROCHLORIDE [Concomitant]
     Indication: PAIN
  7. ANOTHER CHOLESTEROL MEDICATON BUT CAN'T REMEMBER NAME [Concomitant]
     Indication: PRODUCT USED FOR UNKNOWN INDICATION
  8. PREDNISONE TAB [Concomitant]
     Indication: SAPHO SYNDROME

REACTIONS (1)
  - HERNIA [None]
